FAERS Safety Report 5143831-5 (Version None)
Quarter: 2006Q4

REPORT INFORMATION
  Report Type: 
  Country: None (occurrence: None)
  Receive Date: 20061106
  Receipt Date: 20060807
  Transmission Date: 20070319
  Serious: Yes (Hospitalization)
  Sender: FDA-Public Use
  Company Number: GBWYE564407AUG06

PATIENT
  Sex: Female
  Weight: 98 kg

DRUGS (10)
  1. ETANERCEPT [Suspect]
     Indication: RHEUMATOID ARTHRITIS
     Route: 058
     Dates: start: 20030910
  2. FUROSEMIDE [Concomitant]
     Dosage: UNKNOWN
  3. LANSOPRAZOLE [Concomitant]
     Dosage: UNKNOWN
  4. FOLIC ACID [Concomitant]
     Dosage: UNKNOWN
  5. DIHYDROCODEINE/PARACETAMOL [Concomitant]
     Dosage: UNKNOWN
  6. RISEDRONATE SODIUM [Concomitant]
     Dosage: UNKNOWN
  7. LEVOTHYROXINE SODIUM [Concomitant]
     Dosage: UNKNOWN
  8. ENALAPRIL MALEATE [Concomitant]
     Dosage: UNKNOWN
  9. PREDNISOLONE [Concomitant]
     Dosage: UNKNOWN
  10. MORPHINE SULFATE [Concomitant]
     Dosage: UNKNOWN

REACTIONS (5)
  - CATARACT [None]
  - CATARACT OPERATION COMPLICATION [None]
  - CORNEAL ABSCESS [None]
  - POSTOPERATIVE INFECTION [None]
  - POSTOPERATIVE WOUND INFECTION [None]
